FAERS Safety Report 11221895 (Version 1)
Quarter: 2015Q2

REPORT INFORMATION
  Report Type: Spontaneous
  Country: US (occurrence: US)
  Receive Date: 20150626
  Receipt Date: 20150626
  Transmission Date: 20150821
  Serious: No
  Sender: FDA-Public Use
  Company Number: US-ELI_LILLY_AND_COMPANY-US201506003213

PATIENT
  Sex: Male

DRUGS (2)
  1. HUMATROPE [Suspect]
     Active Substance: SOMATROPIN
     Indication: DEVELOPMENTAL DELAY
  2. HUMATROPE [Suspect]
     Active Substance: SOMATROPIN
     Indication: PREMATURE DELIVERY
     Dosage: 1.60 MG, UNKNOWN
     Route: 065
     Dates: start: 201410

REACTIONS (2)
  - Off label use [Unknown]
  - Injection site pain [Unknown]
